FAERS Safety Report 20529545 (Version 8)
Quarter: 2024Q2

REPORT INFORMATION
  Report Type: Spontaneous
  Country: US (occurrence: US)
  Receive Date: 20220301
  Receipt Date: 20240502
  Transmission Date: 20240715
  Serious: Yes (Hospitalization, Disabling, Other)
  Sender: FDA-Public Use
  Company Number: US-GILEAD-2022-0571438

PATIENT
  Age: 83 Year
  Sex: Male

DRUGS (30)
  1. VEKLURY [Suspect]
     Active Substance: REMDESIVIR
     Indication: COVID-19
     Dosage: UNK
     Route: 065
     Dates: start: 20221110, end: 20221110
  2. VEKLURY [Suspect]
     Active Substance: REMDESIVIR
     Indication: Hypoxia
     Dosage: UNK
     Route: 065
     Dates: start: 20211111, end: 20211111
  3. VEKLURY [Suspect]
     Active Substance: REMDESIVIR
     Dosage: UNK X 3 DOSES
     Route: 065
     Dates: start: 20211112, end: 20211114
  4. VEKLURY [Suspect]
     Active Substance: REMDESIVIR
     Dosage: UNK
     Route: 065
  5. MONOCLONAL ANTIBODIES, GRANULOCYTE [Concomitant]
     Indication: COVID-19
     Dosage: UNK
     Dates: start: 20221109, end: 20221109
  6. DECADRON [Concomitant]
     Active Substance: DEXAMETHASONE
     Indication: Hypoxia
     Dosage: UNK
     Dates: start: 20221110
  7. ASPIRIN [Concomitant]
     Active Substance: ASPIRIN
     Dosage: UNK
     Dates: start: 20150817, end: 20220321
  8. LIPITOR [Concomitant]
     Active Substance: ATORVASTATIN CALCIUM
     Dosage: UNK
     Dates: end: 20220321
  9. OSCAL 500+D [Concomitant]
     Dosage: UNK
     Dates: end: 20220321
  10. CARDIZEM CD [Concomitant]
     Active Substance: DILTIAZEM HYDROCHLORIDE
     Dosage: UNK
     Dates: end: 20220321
  11. LASIX [Concomitant]
     Active Substance: FUROSEMIDE
     Dosage: UNK
     Dates: end: 20220321
  12. MELATONIN [Concomitant]
     Active Substance: MELATONIN
     Dosage: UNK
     Dates: end: 20220321
  13. LOPRESSOR [Concomitant]
     Active Substance: METOPROLOL TARTRATE
     Dosage: UNK
     Dates: end: 20220321
  14. TOPROL XL [Concomitant]
     Active Substance: METOPROLOL SUCCINATE
  15. ELIQUIS [Concomitant]
     Active Substance: APIXABAN
  16. KEPPRA [Concomitant]
     Active Substance: LEVETIRACETAM
  17. LISINOPRIL [Concomitant]
     Active Substance: LISINOPRIL
  18. LEXAPRO [Concomitant]
     Active Substance: ESCITALOPRAM OXALATE
  19. TYLENOL [Concomitant]
     Active Substance: ACETAMINOPHEN
  20. LIORESAL [Concomitant]
     Active Substance: BACLOFEN
  21. CALCIUM [Concomitant]
     Active Substance: CALCIUM
  22. LIDODERM [Concomitant]
     Active Substance: LIDOCAINE
  23. NORCO [Concomitant]
     Active Substance: ACETAMINOPHEN\HYDROCODONE BITARTRATE
  24. HEPARIN [Concomitant]
     Active Substance: HEPARIN SODIUM
  25. PLAVIX [Concomitant]
     Active Substance: CLOPIDOGREL BISULFATE
     Dosage: UNK
     Dates: end: 20211211
  26. ROBITUSSIN DM [Concomitant]
     Active Substance: DEXTROMETHORPHAN HYDROBROMIDE\GUAIFENESIN
  27. DOXYCYCLINE [Concomitant]
     Active Substance: DOXYCYCLINE
  28. SULTAMICILLIN [Concomitant]
     Active Substance: SULTAMICILLIN
  29. DECADRON [Concomitant]
     Active Substance: DEXAMETHASONE
  30. TESSALON [Concomitant]
     Active Substance: BENZONATATE

REACTIONS (13)
  - Cerebral infarction [Not Recovered/Not Resolved]
  - Vascular occlusion [Unknown]
  - Haematoma [Unknown]
  - Swelling face [Unknown]
  - Peripheral swelling [Unknown]
  - Cerebrovascular accident [Not Recovered/Not Resolved]
  - Leg amputation [Unknown]
  - Product contamination physical [Recovered/Resolved]
  - Recalled product administered [Recovered/Resolved]
  - Haematoma muscle [Unknown]
  - Seizure [Unknown]
  - Pulmonary embolism [Unknown]
  - Diarrhoea [Unknown]

NARRATIVE: CASE EVENT DATE: 20211101
